FAERS Safety Report 5926491-2 (Version None)
Quarter: 2008Q4

REPORT INFORMATION
  Report Type: 
  Country: None (occurrence: None)
  Receive Date: 20081022
  Receipt Date: 20081016
  Transmission Date: 20090506
  Serious: Yes (Life-Threatening, Hospitalization, Other)
  Sender: FDA-Public Use
  Company Number: PHEH2008US08011

PATIENT
  Sex: Female

DRUGS (1)
  1. RECLAST [Suspect]
     Indication: OSTEOPOROSIS
     Dosage: ONCE YEARLY
     Dates: start: 20080830, end: 20080830

REACTIONS (13)
  - AMNESIA [None]
  - ASTHENIA [None]
  - BLOOD PRESSURE INCREASED [None]
  - DEHYDRATION [None]
  - DIARRHOEA [None]
  - FEELING ABNORMAL [None]
  - HEART RATE INCREASED [None]
  - LOSS OF CONSCIOUSNESS [None]
  - MYOCARDIAL INFARCTION [None]
  - PARAESTHESIA [None]
  - PYREXIA [None]
  - RENAL FAILURE [None]
  - VOMITING [None]
